FAERS Safety Report 4444113-7 (Version None)
Quarter: 2004Q3

REPORT INFORMATION
  Report Type: 
  Country: None (occurrence: None)
  Receive Date: 20040728
  Receipt Date: 20030909
  Transmission Date: 20050211
  Serious: Yes (Hospitalization)
  Sender: FDA-Public Use
  Company Number: US-JNJFOC-20030600228

PATIENT
  Age: 35 Year
  Sex: Male
  Weight: 90.7194 kg

DRUGS (1)
  1. TYLOX [Suspect]
     Indication: BACK PAIN
     Dosage: 1 CAPSULE
     Dates: start: 20030605

REACTIONS (1)
  - HYPERSENSITIVITY [None]
